FAERS Safety Report 25089300 (Version 1)
Quarter: 2025Q1

REPORT INFORMATION
  Report Type: Spontaneous
  Country: US (occurrence: US)
  Receive Date: 20250318
  Receipt Date: 20250318
  Transmission Date: 20250409
  Serious: No
  Sender: MERCK SHARP & DOHME LLC
  Company Number: US-009507513-2258431

PATIENT
  Age: 38 Year
  Sex: Female

DRUGS (2)
  1. MEASLES-MUMPS-RUBELLA VIRUS VACCINE [Suspect]
     Active Substance: MEASLES-MUMPS-RUBELLA VIRUS VACCINE
     Indication: Prophylaxis
  2. STERILE DILUENT (WATER) [Suspect]
     Active Substance: WATER

REACTIONS (3)
  - Measles antibody negative [Unknown]
  - Rubella antibody negative [Unknown]
  - Mumps antibody test negative [Unknown]
